FAERS Safety Report 19767385 (Version 1)
Quarter: 2021Q3

REPORT INFORMATION
  Report Type: Spontaneous
  Country: US (occurrence: US)
  Receive Date: 20210830
  Receipt Date: 20210830
  Transmission Date: 20211014
  Serious: No
  Sender: FDA-Public Use
  Company Number: None

PATIENT
  Age: 57 Year
  Sex: Female
  Weight: 65.25 kg

DRUGS (3)
  1. THORAZINE [Suspect]
     Active Substance: CHLORPROMAZINE
     Indication: PSYCHOTIC DISORDER
     Dosage: ?          QUANTITY:30 TABLET(S);?
     Route: 048
     Dates: start: 20210721, end: 20210801
  2. MAGNESIUM [Concomitant]
     Active Substance: MAGNESIUM
  3. MALATE?L?TRYPTOPHAN?SAME [Concomitant]

REACTIONS (6)
  - Hallucinations, mixed [None]
  - Motor dysfunction [None]
  - Speech disorder [None]
  - Abnormal dreams [None]
  - Dehydration [None]
  - Dry mouth [None]

NARRATIVE: CASE EVENT DATE: 20210827
